FAERS Safety Report 15401888 (Version 1)
Quarter: 2018Q3

REPORT INFORMATION
  Report Type: Spontaneous
  Country: US (occurrence: US)
  Receive Date: 20180919
  Receipt Date: 20180919
  Transmission Date: 20181010
  Serious: No
  Sender: FDA-Public Use
  Company Number: US-TORRENT-00006879

PATIENT
  Age: 43 Year
  Sex: Female
  Weight: 81 kg

DRUGS (3)
  1. TIZANIDINE. [Concomitant]
     Active Substance: TIZANIDINE
     Indication: TEMPOROMANDIBULAR JOINT SYNDROME
     Dosage: 4 MG
  2. ZOLPIDEM TARTRATE. [Suspect]
     Active Substance: ZOLPIDEM TARTRATE
     Indication: INSOMNIA
     Dosage: 5 MG, QD
     Dates: start: 20180821
  3. DICLOFENAC [Concomitant]
     Active Substance: DICLOFENAC
     Indication: TEMPOROMANDIBULAR JOINT SYNDROME
     Dosage: 75 MG

REACTIONS (6)
  - Product substitution issue [Unknown]
  - Pruritus [Recovered/Resolved]
  - Headache [Recovered/Resolved]
  - Product quality issue [Unknown]
  - Nightmare [Recovered/Resolved]
  - Drug ineffective [Unknown]
